FAERS Safety Report 24221790 (Version 2)
Quarter: 2024Q3

REPORT INFORMATION
  Report Type: Spontaneous
  Country: US (occurrence: US)
  Receive Date: 20240819
  Receipt Date: 20240821
  Transmission Date: 20241017
  Serious: Yes (Hospitalization)
  Sender: JOHNSON AND JOHNSON
  Company Number: US-JNJFOC-20240842168

PATIENT
  Age: 51 Year
  Sex: Male

DRUGS (1)
  1. MINOXIDIL [Suspect]
     Active Substance: MINOXIDIL
     Indication: Accidental exposure to product
     Route: 048

REACTIONS (4)
  - Distributive shock [Recovered/Resolved]
  - Pulmonary oedema [Recovered/Resolved]
  - Accidental exposure to product [Unknown]
  - Accidental overdose [Unknown]
